FAERS Safety Report 6275292-7 (Version None)
Quarter: 2009Q3

REPORT INFORMATION
  Report Type: 
  Country: None (occurrence: None)
  Receive Date: 20090721
  Receipt Date: 20090714
  Transmission Date: 20100115
  Serious: Yes (Hospitalization)
  Sender: FDA-Public Use
  Company Number: A0796889A

PATIENT
  Sex: Female

DRUGS (13)
  1. ADVAIR HFA [Suspect]
     Indication: CHRONIC OBSTRUCTIVE PULMONARY DISEASE
     Dosage: 1PUFF THREE TIMES PER DAY
     Route: 055
     Dates: start: 20050101
  2. OXYGEN [Concomitant]
  3. NEXIUM [Concomitant]
  4. ALBUTEROL [Concomitant]
  5. LYRICA [Concomitant]
  6. DIAZEPAM [Concomitant]
  7. CHANTIX [Concomitant]
  8. UNSPECIFIED MEDICATION [Concomitant]
  9. HYDROCODONE [Concomitant]
  10. VITAMIN D [Concomitant]
  11. MULTI-VITAMIN [Concomitant]
  12. XYZAL [Concomitant]
  13. DETROL [Concomitant]

REACTIONS (3)
  - CANDIDIASIS [None]
  - OVERDOSE [None]
  - UPPER RESPIRATORY TRACT INFECTION [None]
